FAERS Safety Report 5584220-9 (Version None)
Quarter: 2008Q1

REPORT INFORMATION
  Report Type: 
  Country: None (occurrence: None)
  Receive Date: 20080108
  Receipt Date: 20071221
  Transmission Date: 20080703
  Serious: Yes (Hospitalization)
  Sender: FDA-Public Use
  Company Number: FR-BAYER-200810089GPV

PATIENT
  Age: 69 Year
  Sex: Male

DRUGS (16)
  1. SORAFENIB [Suspect]
     Indication: NON-SMALL CELL LUNG CANCER
     Dosage: TOTAL DAILY DOSE: 800 MG
     Route: 048
     Dates: start: 20071022, end: 20071219
  2. GEMCITABINE [Suspect]
     Indication: NON-SMALL CELL LUNG CANCER
     Dosage: TOTAL DAILY DOSE: 2100 MG
     Route: 042
     Dates: start: 20071112, end: 20071112
  3. GEMCITABINE [Suspect]
     Dosage: TOTAL DAILY DOSE: 2100 MG
     Route: 042
     Dates: start: 20071022, end: 20071022
  4. GEMCITABINE [Suspect]
     Dosage: TOTAL DAILY DOSE: 2100 MG
     Route: 042
     Dates: start: 20071029, end: 20071029
  5. CISPLATIN [Suspect]
     Indication: NON-SMALL CELL LUNG CANCER
     Dosage: TOTAL DAILY DOSE: 125 MG
     Route: 042
     Dates: start: 20071112, end: 20071112
  6. CISPLATIN [Suspect]
     Dosage: TOTAL DAILY DOSE: 125 MG
     Route: 042
     Dates: start: 20071022, end: 20071022
  7. EMEND [Concomitant]
     Indication: PROPHYLAXIS OF NAUSEA AND VOMITING
     Route: 065
     Dates: start: 20071022, end: 20071022
  8. EMEND [Concomitant]
     Route: 065
     Dates: start: 20071112, end: 20071112
  9. ZOPHREN [Concomitant]
     Indication: PROPHYLAXIS OF NAUSEA AND VOMITING
     Route: 065
     Dates: start: 20071022, end: 20071022
  10. ZOPHREN [Concomitant]
     Route: 065
     Dates: start: 20071029, end: 20071029
  11. ZOPHREN [Concomitant]
     Route: 065
     Dates: start: 20071112, end: 20071112
  12. SOLU-MEDROL [Concomitant]
     Indication: PROPHYLAXIS OF NAUSEA AND VOMITING
     Route: 065
     Dates: start: 20071022, end: 20071022
  13. SOLU-MEDROL [Concomitant]
     Route: 065
     Dates: start: 20071112, end: 20071112
  14. GLUCOSE [Concomitant]
     Indication: DEHYDRATION
     Route: 065
     Dates: start: 20071022, end: 20071022
  15. GLUCOSE [Concomitant]
     Route: 065
     Dates: start: 20071029, end: 20071029
  16. GLUCOSE [Concomitant]
     Route: 065
     Dates: start: 20071112, end: 20071112

REACTIONS (3)
  - ANOREXIA [None]
  - DIARRHOEA [None]
  - GENERAL PHYSICAL HEALTH DETERIORATION [None]
